FAERS Safety Report 6933670-4 (Version None)
Quarter: 2010Q3

REPORT INFORMATION
  Report Type: 
  Country: None (occurrence: None)
  Receive Date: 20100820
  Receipt Date: 20100804
  Transmission Date: 20110219
  Serious: Yes (Hospitalization)
  Sender: FDA-Public Use
  Company Number: US-JNJFOC-20100708174

PATIENT
  Sex: Male
  Weight: 77.11 kg

DRUGS (13)
  1. NUCYNTA [Suspect]
     Indication: BACK PAIN
     Dosage: 2 PER DAY
     Route: 048
  2. METFORMIN HCL [Concomitant]
     Indication: DIABETES MELLITUS
     Route: 065
  3. JANUVIA [Concomitant]
     Route: 065
  4. LISINOPRIL [Concomitant]
     Route: 065
  5. ASPIRIN [Concomitant]
     Route: 065
  6. SIMVASTATIN [Concomitant]
     Route: 065
  7. DEXILANT [Concomitant]
     Route: 065
  8. SINGULAIR [Concomitant]
     Indication: MULTIPLE ALLERGIES
     Route: 065
  9. CLARITIN [Concomitant]
     Route: 065
  10. METOPROLOL TARTRATE [Concomitant]
     Route: 065
  11. MELATONIN [Concomitant]
     Indication: SLEEP DISORDER
     Route: 065
  12. VALIUM [Concomitant]
     Route: 065
  13. AMITRIPTYLINE HYDROCHLORIDE [Concomitant]
     Indication: FIBROMYALGIA
     Route: 065

REACTIONS (11)
  - ABNORMAL BEHAVIOUR [None]
  - ASTHMA [None]
  - CONFUSIONAL STATE [None]
  - DISORIENTATION [None]
  - DRUG SCREEN POSITIVE [None]
  - HALLUCINATION, VISUAL [None]
  - HYPOAESTHESIA [None]
  - HYPOTENSION [None]
  - PARAESTHESIA [None]
  - PRESYNCOPE [None]
  - TREMOR [None]
